FAERS Safety Report 10243883 (Version 1)
Quarter: 2014Q2

REPORT INFORMATION
  Report Type: Spontaneous
  Country: US (occurrence: US)
  Receive Date: 20140618
  Receipt Date: 20140618
  Transmission Date: 20141212
  Serious: Yes (Other)
  Sender: FDA-Public Use
  Company Number: US-SA-2014SA077703

PATIENT
  Sex: 0

DRUGS (1)
  1. PLAVIX [Suspect]
     Indication: CARDIOVASCULAR DISORDER
     Route: 048

REACTIONS (2)
  - Multiple injuries [Unknown]
  - Gastrointestinal haemorrhage [Unknown]
